FAERS Safety Report 25009994 (Version 1)
Quarter: 2025Q1

REPORT INFORMATION
  Report Type: Spontaneous
  Country: DE (occurrence: DE)
  Receive Date: 20250225
  Receipt Date: 20250225
  Transmission Date: 20250409
  Serious: Yes (Other)
  Sender: DR REDDYS
  Company Number: DE-GERMAN-DEU/2025/02/002150

PATIENT
  Age: 43 Year
  Sex: Male

DRUGS (12)
  1. QUETIAPINE [Suspect]
     Active Substance: QUETIAPINE
     Indication: Post-traumatic stress disorder
     Dosage: 25 MG, 0-0-1
  2. QUETIAPINE [Suspect]
     Active Substance: QUETIAPINE
     Dosage: 0-0-0-1
  3. QUETIAPINE [Suspect]
     Active Substance: QUETIAPINE
     Dosage: 0-0-0-1
  4. QUETIAPINE [Suspect]
     Active Substance: QUETIAPINE
  5. SERTRALINE [Suspect]
     Active Substance: SERTRALINE HYDROCHLORIDE
     Indication: Post-traumatic stress disorder
     Dosage: 150 MG 1-0-0
  6. DULOXETINE [Suspect]
     Active Substance: DULOXETINE
     Indication: Post-traumatic stress disorder
  7. LERCANIDIPINE [Concomitant]
     Active Substance: LERCANIDIPINE
     Indication: Hypertension
     Dosage: 10 MG 1-0-1-0
  8. METAMIZOLE [Concomitant]
     Active Substance: METAMIZOLE
     Indication: Post-traumatic stress disorder
     Dosage: 500 MG 1-0-1
  9. IBUPROFEN [Concomitant]
     Active Substance: IBUPROFEN
     Indication: Post-traumatic stress disorder
     Dosage: 600 MG 1-0-1
  10. VITAMIN D [Concomitant]
     Active Substance: VITAMIN D NOS
     Indication: Product used for unknown indication
  11. BRINZOLAMIDE [Concomitant]
     Active Substance: BRINZOLAMIDE
     Indication: Product used for unknown indication
  12. EPLERENONE [Concomitant]
     Active Substance: EPLERENONE
     Indication: Product used for unknown indication
     Dosage: 50 MG 1-0-0

REACTIONS (2)
  - Drug ineffective [Unknown]
  - Product use in unapproved indication [Unknown]
